FAERS Safety Report 20295490 (Version 1)
Quarter: 2022Q1

REPORT INFORMATION
  Report Type: Spontaneous
  Country: US (occurrence: US)
  Receive Date: 20220104
  Receipt Date: 20220104
  Transmission Date: 20220423
  Serious: No
  Sender: FDA-Public Use
  Company Number: US-ELI_LILLY_AND_COMPANY-US202201000040

PATIENT
  Sex: Female

DRUGS (9)
  1. HUMALOG [Suspect]
     Active Substance: INSULIN LISPRO
     Indication: Diabetes mellitus
     Dosage: 2 U, UNKNOWN(IF SUGAR IS OVER 200)
     Route: 065
  2. HUMALOG [Suspect]
     Active Substance: INSULIN LISPRO
     Indication: Diabetes mellitus
     Dosage: 2 U, UNKNOWN(IF SUGAR IS OVER 200)
     Route: 065
  3. HUMALOG [Suspect]
     Active Substance: INSULIN LISPRO
     Dosage: 4 U, UNKNOWN(IF SUGAR IS OVER 250)
     Route: 065
  4. HUMALOG [Suspect]
     Active Substance: INSULIN LISPRO
     Dosage: 4 U, UNKNOWN(IF SUGAR IS OVER 250)
     Route: 065
  5. HUMALOG [Suspect]
     Active Substance: INSULIN LISPRO
     Dosage: 2 U, UNKNOWN(IF SUGAR IS OVER 200)
     Route: 065
     Dates: end: 20211221
  6. HUMALOG [Suspect]
     Active Substance: INSULIN LISPRO
     Dosage: 2 U, UNKNOWN(IF SUGAR IS OVER 200)
     Route: 065
     Dates: end: 20211221
  7. HUMALOG [Suspect]
     Active Substance: INSULIN LISPRO
     Dosage: 4 U, UNKNOWN(IF SUGAR IS OVER 250)
     Route: 065
     Dates: end: 20211221
  8. HUMALOG [Suspect]
     Active Substance: INSULIN LISPRO
     Dosage: 4 U, UNKNOWN(IF SUGAR IS OVER 250)
     Route: 065
     Dates: end: 20211221
  9. LANTUS [Concomitant]
     Active Substance: INSULIN GLARGINE
     Indication: Product used for unknown indication

REACTIONS (2)
  - Hypoacusis [Not Recovered/Not Resolved]
  - Blood glucose increased [Unknown]
